FAERS Safety Report 23764735 (Version 2)
Quarter: 2024Q2

REPORT INFORMATION
  Report Type: Spontaneous
  Country: RO (occurrence: RO)
  Receive Date: 20240420
  Receipt Date: 20240423
  Transmission Date: 20240716
  Serious: Yes (Other)
  Sender: FDA-Public Use
  Company Number: RO-Gedeon Richter Plc.-2024_GR_003816

PATIENT
  Age: 20 Year
  Sex: Female

DRUGS (5)
  1. CARIPRAZINE [Suspect]
     Active Substance: CARIPRAZINE
     Indication: Perinatal depression
     Route: 065
  2. DIAZEPAM [Suspect]
     Active Substance: DIAZEPAM
     Indication: Product used for unknown indication
     Dosage: SEVERAL TABLETS
     Route: 065
     Dates: start: 2023, end: 2023
  3. QUETIAPINE [Suspect]
     Active Substance: QUETIAPINE
     Indication: Product used for unknown indication
     Route: 065
     Dates: start: 2023, end: 2023
  4. OLANZAPINE [Suspect]
     Active Substance: OLANZAPINE
     Indication: Perinatal depression
     Dosage: 5MG/DAY, GRADUALLY INCREASING THE DOSE TO 15MG/DAY THEN GRADUALLY DECREASED.
     Route: 065
  5. OLANZAPINE [Suspect]
     Active Substance: OLANZAPINE
     Indication: Perinatal depression
     Dosage: GRADUALLY INCREASING THE DOSE TO 15MG/DAY THEN GRADUALLY DECREASED.
     Route: 065

REACTIONS (3)
  - Suicide attempt [Recovered/Resolved]
  - Drug ineffective for unapproved indication [Unknown]
  - Product use in unapproved indication [Unknown]

NARRATIVE: CASE EVENT DATE: 20230101
